FAERS Safety Report 18502094 (Version 3)
Quarter: 2021Q1

REPORT INFORMATION
  Report Type: Spontaneous
  Country: HK (occurrence: HK)
  Receive Date: 20201113
  Receipt Date: 20210105
  Transmission Date: 20210419
  Serious: Yes (Death, Other)
  Sender: FDA-Public Use
  Company Number: HK-ALXN-A202016539

PATIENT
  Age: 12 Year
  Sex: Female

DRUGS (37)
  1. CIPROFLOXACIN. [Concomitant]
     Active Substance: CIPROFLOXACIN
     Indication: ANTIBIOTIC THERAPY
     Dosage: 400 MG, QD
     Route: 042
     Dates: start: 20200827, end: 20200830
  2. CIPROFLOXACIN. [Concomitant]
     Active Substance: CIPROFLOXACIN
     Dosage: 400 MG, Q12H
     Route: 042
     Dates: start: 20200831, end: 20200907
  3. MICAFUNGIN. [Concomitant]
     Active Substance: MICAFUNGIN SODIUM
     Indication: ANTIFUNGAL TREATMENT
     Dosage: 44 MG, QD
     Route: 042
     Dates: start: 20200616, end: 20200830
  4. BUDESONIDE. [Concomitant]
     Active Substance: BUDESONIDE
     Indication: IMMUNOSUPPRESSANT DRUG THERAPY
     Dosage: 6 MG, BID
     Route: 048
     Dates: start: 20200715, end: 20200917
  5. TACROLIMUS. [Concomitant]
     Active Substance: TACROLIMUS
     Indication: IMMUNOSUPPRESSANT DRUG THERAPY
     Dosage: 0.5 MG, Q12H
     Route: 042
     Dates: start: 20200813, end: 20200816
  6. PHYTOMENADIONE [Concomitant]
     Active Substance: PHYTONADIONE
     Indication: SUPPLEMENTATION THERAPY
     Dosage: 10 MG, QD
     Route: 042
     Dates: start: 20200518, end: 20201001
  7. FRUSEMIDE                          /00032601/ [Concomitant]
     Active Substance: FUROSEMIDE
     Indication: SUPPLEMENTATION THERAPY
     Dosage: 30 MG, Q8H
     Route: 042
     Dates: start: 20200815, end: 20200818
  8. METHYLPREDISOLONE [Concomitant]
     Active Substance: METHYLPREDNISOLONE
     Indication: IMMUNOSUPPRESSANT DRUG THERAPY
     Dosage: 40 MG, Q12H
     Route: 042
     Dates: start: 20200805, end: 20200821
  9. RUXOLITINIB [Concomitant]
     Active Substance: RUXOLITINIB
     Indication: IMMUNOSUPPRESSANT DRUG THERAPY
     Dosage: 5 MG, QD
     Route: 048
     Dates: start: 20200904, end: 20200917
  10. ALBUMIN [Concomitant]
     Active Substance: ALBUMIN HUMAN
     Dosage: 30 G, SINGLE
     Route: 042
     Dates: start: 20200911, end: 20200911
  11. TAZOCIN [Concomitant]
     Active Substance: PIPERACILLIN SODIUM\TAZOBACTAM SODIUM
     Indication: ANTIBIOTIC THERAPY
     Dosage: 3.6 G, Q8H
     Route: 042
     Dates: start: 20200904, end: 20200907
  12. MICAFUNGIN. [Concomitant]
     Active Substance: MICAFUNGIN SODIUM
     Dosage: 130 MG, Q24H
     Route: 042
     Dates: start: 20200831, end: 20200919
  13. HYDRALAZINE [Concomitant]
     Active Substance: HYDRALAZINE HYDROCHLORIDE
     Indication: HYPERTENSION
     Dosage: 20 MG, Q8H
     Route: 042
     Dates: start: 20200814, end: 20200906
  14. FRUSEMIDE                          /00032601/ [Concomitant]
     Active Substance: FUROSEMIDE
     Dosage: 20 MG, Q8H
     Route: 042
     Dates: start: 20200819, end: 20200819
  15. ALBUMIN [Concomitant]
     Active Substance: ALBUMIN HUMAN
     Indication: SUPPLEMENTATION THERAPY
     Dosage: 40 G, SINGLE
     Route: 042
     Dates: start: 20200827, end: 20200827
  16. FILGRASTIM [Concomitant]
     Active Substance: FILGRASTIM
     Indication: SUPPLEMENTATION THERAPY
     Dosage: 200 ?G, QD
     Route: 042
     Dates: start: 20200904, end: 20200904
  17. SOLIRIS [Suspect]
     Active Substance: ECULIZUMAB
     Indication: OFF LABEL USE
     Dosage: 900 MG, QW FOR 5 DOSES
     Route: 042
     Dates: start: 20200816, end: 20200911
  18. MYCOPHENOLATE MOFETIL. [Concomitant]
     Active Substance: MYCOPHENOLATE MOFETIL
     Indication: IMMUNOSUPPRESSANT DRUG THERAPY
     Dosage: 750 MG, Q12H
     Route: 042
     Dates: start: 20200513, end: 20201001
  19. METHYLPREDISOLONE [Concomitant]
     Active Substance: METHYLPREDNISOLONE
     Dosage: 15 MG, Q12H
     Route: 042
     Dates: start: 20200904, end: 20200926
  20. ESOMEPRAZOLE. [Concomitant]
     Active Substance: ESOMEPRAZOLE MAGNESIUM
     Indication: SUPPLEMENTATION THERAPY
     Dosage: 20 MG, QD
     Route: 042
     Dates: start: 20200716, end: 20200912
  21. TRANEXAMIC ACID. [Concomitant]
     Active Substance: TRANEXAMIC ACID
     Indication: SUPPLEMENTATION THERAPY
     Dosage: 400 MG, QD
     Route: 042
     Dates: start: 20200811, end: 20200827
  22. SOLIRIS [Suspect]
     Active Substance: ECULIZUMAB
     Indication: STEM CELL TRANSPLANT
  23. SOLIRIS [Suspect]
     Active Substance: ECULIZUMAB
     Indication: THROMBOTIC MICROANGIOPATHY
  24. METHYLPREDISOLONE [Concomitant]
     Active Substance: METHYLPREDNISOLONE
     Dosage: 20 MG, Q12H
     Route: 042
     Dates: start: 20200828, end: 20200903
  25. LABETALOL [Concomitant]
     Active Substance: LABETALOL\LABETALOL HYDROCHLORIDE
     Dosage: 25 MG, BID
     Route: 048
     Dates: start: 20200904, end: 20200906
  26. CALCITRIOL. [Concomitant]
     Active Substance: CALCITRIOL
     Dosage: 0.25 ?G, ON ALTERNATE DAYS
     Route: 048
     Dates: start: 20200903, end: 20200918
  27. FRUSEMIDE                          /00032601/ [Concomitant]
     Active Substance: FUROSEMIDE
     Dosage: 20 MG, Q4H, PRN
     Route: 042
     Dates: start: 20200820, end: 20200828
  28. COTRIMOXAZOLE [Concomitant]
     Active Substance: SULFAMETHOXAZOLE\TRIMETHOPRIM
     Indication: ANTIBIOTIC THERAPY
     Dosage: 240 MG, BID
     Route: 048
     Dates: start: 20200807, end: 20201001
  29. CEFTRIAXONE. [Concomitant]
     Active Substance: CEFTRIAXONE
     Indication: ANTIBIOTIC THERAPY
     Dosage: 2 G, Q12H
     Route: 042
     Dates: start: 20200816, end: 20200819
  30. CEFTRIAXONE. [Concomitant]
     Active Substance: CEFTRIAXONE
     Dosage: 1 G, Q12H
     Route: 042
     Dates: start: 20200819, end: 20200828
  31. METHYLPREDISOLONE [Concomitant]
     Active Substance: METHYLPREDNISOLONE
     Dosage: 35 MG, Q12H
     Route: 042
     Dates: start: 20200821, end: 20200828
  32. LABETALOL [Concomitant]
     Active Substance: LABETALOL\LABETALOL HYDROCHLORIDE
     Indication: HYPERTENSION
     Dosage: 50 MG, BID
     Route: 048
     Dates: start: 20200813, end: 20200904
  33. CALCITRIOL. [Concomitant]
     Active Substance: CALCITRIOL
     Indication: SUPPLEMENTATION THERAPY
     Dosage: 0.25 ?G, QD
     Route: 048
     Dates: start: 20200818, end: 20200903
  34. ESTROGENS CONJUGATED [Concomitant]
     Active Substance: ESTROGENS, CONJUGATED
     Indication: SUPPLEMENTATION THERAPY
     Dosage: 2.5 MG, QD
     Route: 048
     Dates: start: 20200903, end: 20200918
  35. CIDOFOVIR. [Concomitant]
     Active Substance: CIDOFOVIR
     Indication: ANTIVIRAL TREATMENT
     Dosage: 20 MG, Q2W
     Route: 042
     Dates: start: 20200811, end: 20200817
  36. AMLODIPINE [Concomitant]
     Active Substance: AMLODIPINE BESYLATE
     Indication: HYPERTENSION
     Dosage: 5 MG, BID
     Route: 048
     Dates: start: 20200814, end: 20200904
  37. AMLODIPINE [Concomitant]
     Active Substance: AMLODIPINE BESYLATE
     Dosage: 5 MG, QD
     Route: 048
     Dates: start: 20200907, end: 20200917

REACTIONS (2)
  - Death [Fatal]
  - Off label use [Recovered/Resolved]

NARRATIVE: CASE EVENT DATE: 20200816
